FAERS Safety Report 8825869 (Version 1)
Quarter: 2012Q4

REPORT INFORMATION
  Report Type: 
  Country: FR (occurrence: FR)
  Receive Date: 20121005
  Receipt Date: 20121005
  Transmission Date: 20130627
  Serious: Yes (Death, Life-Threatening)
  Sender: FDA-Public Use
  Company Number: FR-BRISTOL-MYERS SQUIBB COMPANY-16997355

PATIENT
  Age: 66 Year
  Sex: Female

DRUGS (18)
  1. AXEPIM [Suspect]
     Dates: start: 20120713, end: 20120816
  2. AMIKLIN [Suspect]
     Indication: ESCHERICHIA TEST POSITIVE
     Dates: start: 20120610, end: 20120804
  3. AMIKLIN [Suspect]
     Indication: CANDIDIASIS
     Dates: start: 20120610, end: 20120804
  4. ZYVOXID [Suspect]
     Dates: start: 20120802, end: 20120816
  5. TAZOCILLINE [Suspect]
     Indication: CANDIDIASIS
     Dates: start: 20120610
  6. TAZOCILLINE [Suspect]
     Indication: ESCHERICHIA TEST POSITIVE
     Dates: start: 20120610
  7. VANCOMYCIN [Suspect]
     Indication: CANDIDIASIS
     Dates: start: 20120610
  8. VANCOMYCIN [Suspect]
     Indication: ESCHERICHIA TEST POSITIVE
     Dates: start: 20120610
  9. CANCIDAS [Suspect]
     Indication: ESCHERICHIA TEST POSITIVE
     Dates: start: 20120610, end: 20120805
  10. CANCIDAS [Suspect]
     Indication: CANDIDIASIS
     Dates: start: 20120610, end: 20120805
  11. VFEND [Suspect]
     Dates: start: 20120628
  12. TYGACIL [Suspect]
     Dates: start: 20120713
  13. CIFLOX [Suspect]
  14. VOLTARENE [Concomitant]
  15. PARACETAMOL [Concomitant]
  16. URBANYL [Concomitant]
  17. PAROXETINE [Concomitant]
  18. STILNOX [Concomitant]

REACTIONS (11)
  - Death [Fatal]
  - Histiocytosis haematophagic [Unknown]
  - Septic shock [Unknown]
  - Multi-organ failure [None]
  - Duodenal perforation [None]
  - Abscess [None]
  - Cholestasis [None]
  - Hepatocellular injury [None]
  - Lactic acidosis [None]
  - Enterobacter infection [None]
  - Pyelonephritis [None]
